FAERS Safety Report 7720340-8 (Version None)
Quarter: 2011Q3

REPORT INFORMATION
  Report Type: 
  Country: None (occurrence: None)
  Receive Date: 20110831
  Receipt Date: 20110829
  Transmission Date: 20111222
  Serious: No
  Sender: FDA-Public Use
  Company Number: US-PFIZER INC-2011200964

PATIENT
  Sex: Female
  Weight: 99.773 kg

DRUGS (2)
  1. ADVIL LIQUI-GELS [Suspect]
     Indication: PAIN
     Dosage: UNK
     Route: 048
  2. ADVIL LIQUI-GELS [Suspect]
     Indication: HEADACHE
     Dosage: 800 MG, 1X/DAY
     Route: 048

REACTIONS (1)
  - AFTERBIRTH PAIN [None]
